FAERS Safety Report 25302265 (Version 1)
Quarter: 2025Q2

REPORT INFORMATION
  Report Type: Spontaneous
  Country: US (occurrence: None)
  Receive Date: 20250512
  Receipt Date: 20250512
  Transmission Date: 20250717
  Serious: Yes (Hospitalization)
  Sender: FDA-CTU
  Company Number: None

PATIENT
  Age: 53 Year
  Sex: Female
  Weight: 71.55 kg

DRUGS (7)
  1. AUVELITY [Suspect]
     Active Substance: BUPROPION HYDROCHLORIDE\DEXTROMETHORPHAN HYDROBROMIDE
     Dates: start: 20250430, end: 20250505
  2. OLANZAPINE [Concomitant]
     Active Substance: OLANZAPINE
  3. DIAZEPAM [Concomitant]
     Active Substance: DIAZEPAM
  4. ZOLPIDEM [Concomitant]
     Active Substance: ZOLPIDEM TARTRATE
  5. VITAMIN B COMPLEX [Concomitant]
     Active Substance: CYANOCOBALAMIN\DEXPANTHENOL\NIACINAMIDE\PYRIDOXINE HYDROCHLORIDE\RIBOFLAVIN 5^-PHOSPHATE SODIUM\THIA
  6. VITAMINS [Concomitant]
     Active Substance: VITAMINS
  7. LEVOMEFOLATE CALCIUM [Concomitant]
     Active Substance: LEVOMEFOLATE CALCIUM

REACTIONS (4)
  - Catatonia [None]
  - Delusion [None]
  - Hallucination [None]
  - Psychotic disorder [None]

NARRATIVE: CASE EVENT DATE: 20250504
